FAERS Safety Report 4477882-0 (Version None)
Quarter: 2004Q4

REPORT INFORMATION
  Report Type: 
  Country: None (occurrence: None)
  Receive Date: 20041018
  Receipt Date: 20041001
  Transmission Date: 20050328
  Serious: Yes (Other)
  Sender: FDA-Public Use
  Company Number: BR-MERCK-0410BRA00038

PATIENT
  Age: 71 Year
  Sex: Female

DRUGS (5)
  1. ASPIRIN [Concomitant]
     Route: 065
  2. ATENOLOL [Concomitant]
     Route: 065
  3. PRAVASTATIN SODIUM [Concomitant]
     Route: 065
  4. VIOXX [Suspect]
     Indication: BACK PAIN
     Route: 048
     Dates: start: 20040401, end: 20040813
  5. VIOXX [Suspect]
     Route: 048

REACTIONS (2)
  - IRRITABILITY [None]
  - MYOCARDIAL INFARCTION [None]
